FAERS Safety Report 11289442 (Version 1)
Quarter: 2015Q3

REPORT INFORMATION
  Report Type: Spontaneous
  Country: US (occurrence: US)
  Receive Date: 20150721
  Receipt Date: 20150721
  Transmission Date: 20151125
  Serious: Yes (Other)
  Sender: FDA-Public Use
  Company Number: US-ASTRAZENECA-2015SE68035

PATIENT
  Age: 664 Month
  Sex: Female
  Weight: 68 kg

DRUGS (6)
  1. TAMOXIFEN [Suspect]
     Active Substance: TAMOXIFEN
     Route: 048
  2. ARIMIDEX [Suspect]
     Active Substance: ANASTROZOLE
     Indication: NEOPLASM MALIGNANT
     Route: 048
  3. AROMASIN [Suspect]
     Active Substance: EXEMESTANE
     Indication: NEOPLASM MALIGNANT
     Dosage: 25 MG, TINY LITTLE WHITE PILLS, ORAL , ONCE A DAY AFTER SHE EATS
     Route: 048
  4. PERJETA [Concomitant]
     Active Substance: PERTUZUMAB
     Indication: NEOPLASM MALIGNANT
     Dosage: INJECTED IN PORT, EVERY 3 WEEKS
  5. ICBUSPIRONE HCL [Concomitant]
     Indication: NERVOUS SYSTEM DISORDER
     Dosage: 10MG, ONCE A DAY, LITTLE OVAL PILL - BREAKS IT IN HALF TO SWALLOW
  6. HERCEPTIN [Concomitant]
     Active Substance: TRASTUZUMAB
     Indication: NEOPLASM MALIGNANT
     Dosage: INJECTED IN PORT, EVERY 3 WEEKS

REACTIONS (7)
  - Pulmonary mass [Recovered/Resolved]
  - Thyroid cancer [Not Recovered/Not Resolved]
  - Nervousness [Unknown]
  - Malignant neoplasm progression [Unknown]
  - Dysphagia [Not Recovered/Not Resolved]
  - Dyspepsia [Unknown]
  - Arthropathy [Unknown]

NARRATIVE: CASE EVENT DATE: 201404
